FAERS Safety Report 7754261-1 (Version None)
Quarter: 2011Q3

REPORT INFORMATION
  Report Type: 
  Country: None (occurrence: None)
  Receive Date: 20110915
  Receipt Date: 20110907
  Transmission Date: 20111222
  Serious: Yes (Hospitalization)
  Sender: FDA-Public Use
  Company Number: GB-SP-2011-05193

PATIENT
  Sex: Male

DRUGS (4)
  1. IMMUCYST [Suspect]
     Indication: PRODUCT USED FOR UNKNOWN INDICATION
     Route: 065
  2. AMLODIPINE [Concomitant]
  3. CLOPIDOGREL [Concomitant]
  4. SIMVASTATIN [Concomitant]

REACTIONS (7)
  - PYREXIA [None]
  - DEHYDRATION [None]
  - JOINT SWELLING [None]
  - ASPIRATION JOINT [None]
  - URINARY TRACT INFECTION [None]
  - CONFUSIONAL STATE [None]
  - URINE ELECTROLYTES INCREASED [None]
